FAERS Safety Report 12487234 (Version 1)
Quarter: 2016Q2

REPORT INFORMATION
  Report Type: Spontaneous
  Country: US (occurrence: None)
  Receive Date: 20160621
  Receipt Date: 20160621
  Transmission Date: 20160815
  Serious: Yes (Disabling, Other)
  Sender: FDA-Public Use
  Company Number: None

PATIENT
  Age: 50 Year
  Sex: Female
  Weight: 56.25 kg

DRUGS (2)
  1. CIPROFLOXACIN BAYER [Suspect]
     Active Substance: CIPROFLOXACIN
     Indication: URINARY TRACT INFECTION
     Route: 048
  2. CIPROFLOXACIN BAYER [Suspect]
     Active Substance: CIPROFLOXACIN
     Indication: LABORATORY TEST
     Route: 048

REACTIONS (2)
  - Breast mass [None]
  - Breast cyst [None]

NARRATIVE: CASE EVENT DATE: 20160531
